FAERS Safety Report 8640672 (Version 3)
Quarter: 2012Q4

REPORT INFORMATION
  Report Type: 
  Country: US (occurrence: US)
  Receive Date: 20120628
  Receipt Date: 20121031
  Transmission Date: 20130627
  Serious: Yes (Hospitalization, Disabling)
  Sender: FDA-Public Use
  Company Number: US-BAYER-2012-062849

PATIENT
  Age: 20 Year
  Sex: Female
  Weight: 44.44 kg

DRUGS (3)
  1. YASMIN [Suspect]
     Dosage: UNK
     Dates: start: 200805, end: 200906
  2. OCELLA [Suspect]
     Dosage: UNK
     Dates: start: 200906, end: 20090618
  3. POTASSIUM [Concomitant]
     Indication: HYPOKALEMIA

REACTIONS (6)
  - Pulmonary embolism [None]
  - Injury [None]
  - Pain [None]
  - Deformity [None]
  - Anxiety [None]
  - Anhedonia [None]
